FAERS Safety Report 5882938-1 (Version None)
Quarter: 2008Q3

REPORT INFORMATION
  Report Type: 
  Country: None (occurrence: None)
  Receive Date: 20080913
  Receipt Date: 20080820
  Transmission Date: 20090109
  Serious: No
  Sender: FDA-Public Use
  Company Number: US-ABBOTT-08P-163-0471933-00

PATIENT
  Sex: Female
  Weight: 78.088 kg

DRUGS (11)
  1. HUMIRA [Suspect]
     Indication: RHEUMATOID ARTHRITIS
     Route: 058
     Dates: start: 20080701
  2. LEVOTHYROXINE SODIUM [Concomitant]
     Indication: THYROID DISORDER
     Route: 048
     Dates: start: 20060101
  3. VERAPAMIL [Concomitant]
     Indication: BLOOD PRESSURE
     Route: 048
  4. METFORMIN HCL [Concomitant]
     Indication: DIABETES MELLITUS
     Route: 048
  5. QUINAPRIL [Concomitant]
     Indication: BLOOD PRESSURE
     Route: 048
  6. DIAVAN [Concomitant]
     Indication: BLOOD PRESSURE
     Route: 048
  7. CARVEDILOL [Concomitant]
     Indication: CARDIAC DISORDER
     Route: 048
  8. SITAGLIPTIN PHOSPHATE [Concomitant]
     Indication: DIABETES MELLITUS
     Route: 048
  9. SIMVASTATIN [Concomitant]
     Indication: BLOOD CHOLESTEROL
     Route: 048
     Dates: start: 20070101
  10. GLYBURIDE [Concomitant]
     Indication: DIABETES MELLITUS
     Route: 048
  11. INSULIN GLARGINE [Concomitant]
     Indication: DIABETES MELLITUS
     Dosage: 30 UNITS IN AM / 15 UNITS IN PM
     Route: 050

REACTIONS (2)
  - ACCIDENTAL EXPOSURE [None]
  - FOOD POISONING [None]
